FAERS Safety Report 13507598 (Version 1)
Quarter: 2017Q2

REPORT INFORMATION
  Report Type: Spontaneous
  Country: SE (occurrence: SE)
  Receive Date: 20170503
  Receipt Date: 20170503
  Transmission Date: 20170830
  Serious: Yes (Other)
  Sender: FDA-Public Use
  Company Number: PHHY2017SE054792

PATIENT
  Age: 34 Year
  Sex: Male
  Weight: 110 kg

DRUGS (1)
  1. DESLORATADINE SANDOZ [Suspect]
     Active Substance: DESLORATADINE
     Indication: SEASONAL ALLERGY
     Dosage: DOSERING: ^1 TABLETT^
     Route: 065
     Dates: start: 20170315, end: 20170320

REACTIONS (5)
  - Anxiety [Recovered/Resolved]
  - Nightmare [Recovered/Resolved]
  - Dizziness [Recovered/Resolved]
  - Insomnia [Recovered/Resolved]
  - Derealisation [Recovered/Resolved]

NARRATIVE: CASE EVENT DATE: 201703
